FAERS Safety Report 5078704-X (Version None)
Quarter: 2006Q3

REPORT INFORMATION
  Report Type: 
  Country: None (occurrence: None)
  Receive Date: 20060808
  Receipt Date: 20060728
  Transmission Date: 20061208
  Serious: Yes (Hospitalization)
  Sender: FDA-Public Use
  Company Number: 012291

PATIENT
  Age: 77 Year
  Sex: Female

DRUGS (3)
  1. PRIALT [Suspect]
     Indication: BACK PAIN
     Dosage: 0.1 UG, ONCE/HOUR, INTRATHECAL;  0.05 UG, ONCE/HOUR, INTRATHECAL
     Route: 037
     Dates: start: 20060524, end: 20060525
  2. PRIALT [Suspect]
     Indication: BACK PAIN
     Dosage: 0.1 UG, ONCE/HOUR, INTRATHECAL;  0.05 UG, ONCE/HOUR, INTRATHECAL
     Route: 037
     Dates: start: 20060524, end: 20060525
  3. ULTRAM [Concomitant]

REACTIONS (8)
  - ANXIETY [None]
  - CHEST PAIN [None]
  - CONFUSIONAL STATE [None]
  - DEPRESSED LEVEL OF CONSCIOUSNESS [None]
  - DYSPNOEA [None]
  - HEART RATE INCREASED [None]
  - NAUSEA [None]
  - VOMITING [None]
